FAERS Safety Report 24935870 (Version 1)
Quarter: 2025Q1

REPORT INFORMATION
  Report Type: Report from Study
  Country: US (occurrence: US)
  Receive Date: 20250206
  Receipt Date: 20250206
  Transmission Date: 20250409
  Serious: Yes (Other)
  Sender: EXELIXIS
  Company Number: US-EXELIXIS-EXL-2024-000260

PATIENT
  Sex: Female

DRUGS (2)
  1. CABOMETYX [Suspect]
     Active Substance: CABOZANTINIB S-MALATE
     Indication: Renal cell carcinoma
     Dates: start: 20240614
  2. LEVOTHYROXINE [Concomitant]
     Active Substance: LEVOTHYROXINE

REACTIONS (12)
  - Haematochezia [Unknown]
  - Hair colour changes [Unknown]
  - Hepatic enzyme increased [Unknown]
  - Weight decreased [Unknown]
  - Diarrhoea [Unknown]
  - Oral pain [Unknown]
  - Nausea [Unknown]
  - Dysgeusia [Unknown]
  - Blood pressure increased [Unknown]
  - Fatigue [Unknown]
  - Blister [Unknown]
  - Gingival pain [Unknown]
